FAERS Safety Report 7630426-4 (Version None)
Quarter: 2011Q3

REPORT INFORMATION
  Report Type: 
  Country: None (occurrence: None)
  Receive Date: 20110722
  Receipt Date: 20110701
  Transmission Date: 20111222
  Serious: Yes (Hospitalization, Disabling)
  Sender: FDA-Public Use
  Company Number: US-GLAXOSMITHKLINE-B0717058A

PATIENT
  Age: 48 Year
  Sex: Female
  Weight: 89.5 kg

DRUGS (1)
  1. AVANDIA [Suspect]
     Indication: DIABETES MELLITUS
     Dosage: 4MG PER DAY
     Route: 048
     Dates: start: 20040710, end: 20070611

REACTIONS (4)
  - VISUAL FIELD DEFECT [None]
  - CARDIAC FAILURE CONGESTIVE [None]
  - HAEMORRHAGIC STROKE [None]
  - BLINDNESS [None]
